FAERS Safety Report 4802805-1 (Version None)
Quarter: 2005Q4

REPORT INFORMATION
  Report Type: 
  Country: None (occurrence: None)
  Receive Date: 20051017
  Receipt Date: 20051017
  Transmission Date: 20060501
  Serious: Yes (Hospitalization, Other)
  Sender: FDA-Public Use
  Company Number: None

PATIENT
  Sex: Female
  Weight: 101.8 kg

DRUGS (3)
  1. CYCLOPHOSPHAMIDE [Suspect]
     Dosage: IV Q 14 DAYS X 4 CYCLES
     Route: 042
     Dates: start: 20050908
  2. DOXORUBICIN [Suspect]
     Dosage: IV Q 14 DAYS X 4 CYCLES TOTAL DOSE 124 MG
     Route: 042
     Dates: start: 20050922, end: 20050922
  3. DECADRON [Concomitant]

REACTIONS (6)
  - BETA HAEMOLYTIC STREPTOCOCCAL INFECTION [None]
  - BLOOD CULTURE POSITIVE [None]
  - BLOOD GLUCOSE INCREASED [None]
  - CATHETER RELATED INFECTION [None]
  - RASH ERYTHEMATOUS [None]
  - SKIN INFECTION [None]
